FAERS Safety Report 10152209 (Version 1)
Quarter: 2014Q2

REPORT INFORMATION
  Report Type: Spontaneous
  Country: DE (occurrence: None)
  Receive Date: 20140501
  Receipt Date: 20140501
  Transmission Date: 20141212
  Serious: Yes (Life-Threatening, Hospitalization)
  Sender: FDA-Public Use
  Company Number: 2014/025

PATIENT
  Age: 37 Year
  Sex: Female

DRUGS (1)
  1. VENLAFAXINE [Suspect]
     Route: 048

REACTIONS (4)
  - Epilepsy [None]
  - Cardiovascular disorder [None]
  - Respiratory failure [None]
  - Encephalitis [None]
